FAERS Safety Report 8265157-3 (Version None)
Quarter: 2012Q2

REPORT INFORMATION
  Report Type: 
  Country: None (occurrence: None)
  Receive Date: 20120406
  Receipt Date: 20120323
  Transmission Date: 20120825
  Serious: Yes (Other)
  Sender: FDA-Public Use
  Company Number: CA-ROCHE-1052539

PATIENT
  Sex: Male
  Weight: 88.53 kg

DRUGS (11)
  1. RAMIPRIL [Concomitant]
  2. ACETYLSALICYLIC ACID SRT [Concomitant]
  3. MABTHERA [Suspect]
     Indication: RHEUMATOID ARTHRITIS
     Dosage: DOSE FREQUENCY: DAY 1 AND DAY 15
     Route: 042
     Dates: start: 20100706
  4. ATORVASTATIN [Concomitant]
  5. WARFARIN SODIUM [Concomitant]
  6. NITROGLYCERIN [Concomitant]
  7. METOPROLOL TARTRATE [Concomitant]
  8. ACETAMINOPHEN [Concomitant]
     Indication: PREMEDICATION
     Route: 048
     Dates: start: 20110531, end: 20110531
  9. METHYLPREDNISOLONE [Concomitant]
     Indication: PREMEDICATION
     Route: 042
     Dates: start: 20110531, end: 20110531
  10. PANTOPRAZOLE [Concomitant]
  11. DIPHENHYDRAMINE HCL [Concomitant]
     Indication: PREMEDICATION
     Route: 048
     Dates: start: 20110531, end: 20110531

REACTIONS (1)
  - MYOCARDIAL INFARCTION [None]
